FAERS Safety Report 25186887 (Version 1)
Quarter: 2025Q2

REPORT INFORMATION
  Report Type: Spontaneous
  Country: US (occurrence: None)
  Receive Date: 20250411
  Receipt Date: 20250411
  Transmission Date: 20250717
  Serious: Yes (Hospitalization)
  Sender: MDD OPERATIONS
  Company Number: US-MDD US Operations-MDD202501-000194

PATIENT
  Age: 99 Year
  Sex: Male

DRUGS (1)
  1. APOKYN [Suspect]
     Active Substance: APOMORPHINE HYDROCHLORIDE
     Indication: Parkinson^s disease
     Dates: end: 2025

REACTIONS (4)
  - Decreased appetite [Unknown]
  - Somnolence [Unknown]
  - Urinary tract infection [Unknown]
  - Incontinence [Unknown]

NARRATIVE: CASE EVENT DATE: 20250301
